FAERS Safety Report 10521213 (Version 1)
Quarter: 2014Q4

REPORT INFORMATION
  Report Type: Spontaneous
  Country: US (occurrence: None)
  Receive Date: 20141014
  Receipt Date: 20141014
  Transmission Date: 20150528
  Serious: No
  Sender: FDA-Public Use
  Company Number: None

PATIENT
  Age: 24 Year
  Sex: Female

DRUGS (1)
  1. HUMIRA [Suspect]
     Active Substance: ADALIMUMAB
     Indication: PSORIASIS
     Dosage: 80 MG DAY 1, 40 MG DAY 8, THEN 40 MG, AS DIRECTED
     Route: 058
     Dates: start: 20140916

REACTIONS (4)
  - Headache [None]
  - Tremor [None]
  - Dyspepsia [None]
  - Pain in extremity [None]
